FAERS Safety Report 24545156 (Version 2)
Quarter: 2024Q4

REPORT INFORMATION
  Report Type: Spontaneous
  Country: GB (occurrence: GB)
  Receive Date: 20241024
  Receipt Date: 20241031
  Transmission Date: 20250114
  Serious: Yes (Other)
  Sender: BAXTER
  Company Number: GB-MLMSERVICE-20240930-PI205706-00273-2

PATIENT
  Sex: Female

DRUGS (2)
  1. PROPOFOL [Suspect]
     Active Substance: PROPOFOL
     Indication: Anaesthesia
     Dosage: UNK
     Route: 042
  2. HYDROXYZINE [Suspect]
     Active Substance: HYDROXYZINE HYDROCHLORIDE
     Indication: Psoriasis
     Dosage: LONG-TERM, UNSPECIFIED DOSE AND FREQUENCY
     Route: 065

REACTIONS (4)
  - Dysphonia [Unknown]
  - Drug interaction [Recovered/Resolved]
  - Aphasia [Unknown]
  - Dystonia [Recovered/Resolved]
